FAERS Safety Report 7041906-7 (Version None)
Quarter: 2010Q4

REPORT INFORMATION
  Report Type: 
  Country: None (occurrence: None)
  Receive Date: 20101013
  Receipt Date: 20100414
  Transmission Date: 20110411
  Serious: No
  Sender: FDA-Public Use
  Company Number: US-ASTRAZENECA-2010SE15169

PATIENT
  Sex: Male
  Weight: 67.1 kg

DRUGS (12)
  1. SYMBICORT [Suspect]
     Indication: CHRONIC OBSTRUCTIVE PULMONARY DISEASE
     Dosage: 160/4.5 UG  2 PUFFS IN AM AND 2 PUFFS IN PM
     Route: 055
     Dates: start: 20100201
  2. SPIRIVA [Concomitant]
  3. ALBUTEROL [Concomitant]
  4. MICARDIS [Concomitant]
  5. LOPRESSOR [Concomitant]
  6. LEXAPRO [Concomitant]
  7. ATIVAN [Concomitant]
  8. TYLENOL PM [Concomitant]
  9. MUCINEX [Concomitant]
  10. PROTONIX [Concomitant]
  11. AVELOX [Concomitant]
  12. BP MEDICATION [Concomitant]

REACTIONS (2)
  - COUGH [None]
  - INCREASED UPPER AIRWAY SECRETION [None]
